FAERS Safety Report 4787909-4 (Version None)
Quarter: 2005Q3

REPORT INFORMATION
  Report Type: 
  Country: None (occurrence: None)
  Receive Date: 20050926
  Receipt Date: 20050527
  Transmission Date: 20060218
  Serious: Yes (Hospitalization)
  Sender: FDA-Public Use
  Company Number: 214869

PATIENT
  Age: 67 Year
  Sex: Male
  Weight: 106.6 kg

DRUGS (6)
  1. AVASTIN [Suspect]
     Indication: RENAL CELL CARCINOMA STAGE UNSPECIFIED
     Dosage: 1100MG, Q2W, INTRAVENOUS
     Route: 042
  2. COUMADIN [Suspect]
     Indication: DRUG USE FOR UNKNOWN INDICATION
  3. NORVASC [Concomitant]
  4. PREVACID [Concomitant]
  5. ATENOLOL [Concomitant]
  6. PROZAC [Concomitant]

REACTIONS (1)
  - HAEMORRHAGE INTRACRANIAL [None]
